FAERS Safety Report 6186747-8 (Version None)
Quarter: 2009Q2

REPORT INFORMATION
  Report Type: 
  Country: None (occurrence: None)
  Receive Date: 20090512
  Receipt Date: 20080930
  Transmission Date: 20091009
  Serious: Yes (Hospitalization, Other)
  Sender: FDA-Public Use
  Company Number: NL-B.I. PHARMACEUTICALS,INC./RIDGEFIELD-2008-NL-00607NL

PATIENT
  Sex: Male

DRUGS (2)
  1. SPIRIVA [Suspect]
     Dates: start: 20050101
  2. SERETIDE [Concomitant]
     Dates: start: 20010101

REACTIONS (9)
  - ABDOMINAL DISCOMFORT [None]
  - EYE IRRITATION [None]
  - GLAUCOMA [None]
  - GOITRE [None]
  - NEUROLOGICAL SYMPTOM [None]
  - PULMONARY EMBOLISM [None]
  - THYROID DISORDER [None]
  - TRANSIENT ISCHAEMIC ATTACK [None]
  - WEIGHT DECREASED [None]
